FAERS Safety Report 21415195 (Version 1)
Quarter: 2022Q4

REPORT INFORMATION
  Report Type: Other
  Country: GB (occurrence: GB)
  Receive Date: 20221006
  Receipt Date: 20221006
  Transmission Date: 20230112
  Serious: No
  Sender: FDA-Public Use
  Company Number: GB-MHRA-MED-202209240825417530-MQZDH

PATIENT
  Age: 59 Year
  Sex: Male
  Weight: 112 kg

DRUGS (2)
  1. EMTRICITABINE\TENOFOVIR [Suspect]
     Active Substance: EMTRICITABINE\TENOFOVIR
     Indication: Prophylaxis
     Dosage: UNK, TABLET (UNCOATED, ORAL)
     Route: 065
  2. EMTRICITABINE\TENOFOVIR [Suspect]
     Active Substance: EMTRICITABINE\TENOFOVIR
     Indication: Adverse drug reaction

REACTIONS (1)
  - Abnormal dreams [Not Recovered/Not Resolved]
